FAERS Safety Report 21398799 (Version 2)
Quarter: 2022Q4

REPORT INFORMATION
  Report Type: Spontaneous
  Country: US (occurrence: US)
  Receive Date: 20221001
  Receipt Date: 20221012
  Transmission Date: 20230113
  Serious: Yes (Hospitalization, Other)
  Sender: FDA-Public Use
  Company Number: US-MLMSERVICE-20220915-3795366-1

PATIENT
  Age: 30 Year
  Sex: Male

DRUGS (1)
  1. ACETAMINOPHEN [Suspect]
     Active Substance: ACETAMINOPHEN
     Indication: Product used for unknown indication
     Dosage: 50 DOSAGE FORM (TOTAL)
     Route: 048

REACTIONS (11)
  - Methaemoglobinaemia [Recovering/Resolving]
  - Acute kidney injury [Recovering/Resolving]
  - Metabolic acidosis [Unknown]
  - Coagulopathy [Unknown]
  - Lactic acidosis [Unknown]
  - Intentional overdose [Unknown]
  - Drug-induced liver injury [Recovered/Resolved]
  - Sulphaemoglobinaemia [Unknown]
  - Thrombocytopenia [Unknown]
  - Renal failure [Recovering/Resolving]
  - Leukocytosis [Unknown]
